FAERS Safety Report 9733605 (Version 1)
Quarter: 2013Q4

REPORT INFORMATION
  Report Type: Spontaneous
  Country: SE (occurrence: SE)
  Receive Date: 20131205
  Receipt Date: 20131205
  Transmission Date: 20140711
  Serious: Yes (Other)
  Sender: FDA-Public Use
  Company Number: SE-GLAXOSMITHKLINE-B0950646A

PATIENT
  Age: 2 Year
  Sex: Female

DRUGS (2)
  1. BETAPRED [Suspect]
     Indication: PSEUDOCROUP
     Route: 065
     Dates: start: 20131102, end: 20131104
  2. FLUTIDE [Suspect]
     Indication: PSEUDOCROUP
     Dosage: 1SPR THREE TIMES PER DAY
     Route: 055
     Dates: start: 20131102, end: 20131104

REACTIONS (4)
  - Hallucination [Not Recovered/Not Resolved]
  - Aggression [Not Recovered/Not Resolved]
  - Psychotic disorder [Not Recovered/Not Resolved]
  - Anger [Not Recovered/Not Resolved]
